FAERS Safety Report 16006461 (Version 3)
Quarter: 2021Q4

REPORT INFORMATION
  Report Type: Spontaneous
  Country: US (occurrence: US)
  Receive Date: 20190225
  Receipt Date: 20211203
  Transmission Date: 20220303
  Serious: Yes (Other)
  Sender: FDA-Public Use
  Company Number: PHEH2019US008418

PATIENT
  Sex: Male

DRUGS (1)
  1. TASIGNA [Suspect]
     Active Substance: NILOTINIB
     Indication: Chronic myeloid leukaemia
     Dosage: 1 DF, BID
     Route: 048
     Dates: start: 201102, end: 201504

REACTIONS (49)
  - Malignant hypertension [Unknown]
  - Suicide attempt [Unknown]
  - Serotonin syndrome [Unknown]
  - Myocardial ischaemia [Unknown]
  - Mediastinitis [Unknown]
  - Chronic respiratory failure [Unknown]
  - Vertebral artery stenosis [Unknown]
  - Tricuspid valve incompetence [Unknown]
  - Carotid artery stenosis [Unknown]
  - Arteriosclerosis coronary artery [Unknown]
  - Atrial fibrillation [Unknown]
  - Cardiac failure congestive [Unknown]
  - Pericardial effusion [Unknown]
  - Acute myocardial infarction [Unknown]
  - Myocardial infarction [Unknown]
  - Acute kidney injury [Unknown]
  - Cerebrovascular accident [Unknown]
  - Pleural effusion [Unknown]
  - Coronary artery disease [Unknown]
  - Chronic kidney disease [Unknown]
  - Osteoarthritis [Unknown]
  - Affective disorder [Unknown]
  - Anaemia of chronic disease [Unknown]
  - Malnutrition [Unknown]
  - Productive cough [Unknown]
  - Spinal osteoarthritis [Unknown]
  - Sacroiliitis [Unknown]
  - Obesity [Unknown]
  - Sleep apnoea syndrome [Unknown]
  - Peripheral vascular disorder [Unknown]
  - Renal cyst [Unknown]
  - Cardiomegaly [Unknown]
  - Dysarthria [Unknown]
  - Hypoaesthesia [Unknown]
  - Paraesthesia [Unknown]
  - Back pain [Unknown]
  - Injury [Unknown]
  - Flank pain [Unknown]
  - Chest pain [Unknown]
  - Arthritis [Unknown]
  - Wheezing [Unknown]
  - Hyperaesthesia [Unknown]
  - Hyperuricaemia [Unknown]
  - Arteriosclerosis [Unknown]
  - Tremor [Unknown]
  - Arthralgia [Unknown]
  - Anxiety [Unknown]
  - Emotional distress [Unknown]
  - Pain [Unknown]
